FAERS Safety Report 11993765 (Version 1)
Quarter: 2016Q1

REPORT INFORMATION
  Report Type: Report from Study
  Country: CH (occurrence: CH)
  Receive Date: 20160203
  Receipt Date: 20160203
  Transmission Date: 20160526
  Serious: Yes (Hospitalization, Other)
  Sender: FDA-Public Use
  Company Number: PHHY2015CH159564

PATIENT
  Age: 8 Year
  Sex: Female

DRUGS (8)
  1. EXJADE [Suspect]
     Active Substance: DEFERASIROX
     Indication: THALASSAEMIA BETA
     Dosage: 250 MG, QD PER DAY
     Route: 065
     Dates: start: 20100818, end: 201206
  2. EXJADE [Suspect]
     Active Substance: DEFERASIROX
     Dosage: 500 MG, PER DAY
     Route: 065
     Dates: start: 20151125
  3. EXJADE [Suspect]
     Active Substance: DEFERASIROX
     Dosage: 500 MG, PER DAY
     Route: 065
     Dates: start: 20140930
  4. PARACETAMOL [Concomitant]
     Active Substance: ACETAMINOPHEN
     Indication: PRODUCT USED FOR UNKNOWN INDICATION
     Route: 065
  5. FERRIPROX [Suspect]
     Active Substance: DEFERIPRONE
     Indication: PRODUCT USED FOR UNKNOWN INDICATION
     Route: 065
  6. EXJADE [Suspect]
     Active Substance: DEFERASIROX
     Dosage: 750 MG, PER DAY
     Route: 065
     Dates: start: 20151216
  7. EXJADE [Suspect]
     Active Substance: DEFERASIROX
     Dosage: 1000 MG, PER DAY
     Route: 065
     Dates: start: 20150511, end: 20151117
  8. DESFERAL [Suspect]
     Active Substance: DEFEROXAMINE MESYLATE
     Indication: PRODUCT USED FOR UNKNOWN INDICATION
     Dosage: UNK
     Route: 058
     Dates: start: 201208

REACTIONS (21)
  - Gastrointestinal infection [Unknown]
  - Diarrhoea [Unknown]
  - Hypocalcaemia [Unknown]
  - Proteinuria [Unknown]
  - Rhinorrhoea [Unknown]
  - Abdominal pain [Unknown]
  - Nausea [Unknown]
  - Cough [Unknown]
  - Fanconi syndrome [Not Recovered/Not Resolved]
  - Body temperature increased [Unknown]
  - Pain in extremity [Recovering/Resolving]
  - Electrolyte imbalance [Unknown]
  - Pyrexia [Recovered/Resolved]
  - Hypophosphataemia [Unknown]
  - Glycosuria [Unknown]
  - Hypokalaemia [Unknown]
  - Vomiting [Unknown]
  - Myalgia [Unknown]
  - Fatigue [Unknown]
  - Renal tubular disorder [Unknown]
  - Hepatic enzyme increased [Recovered/Resolved]

NARRATIVE: CASE EVENT DATE: 201508
